FAERS Safety Report 8830283 (Version 2)
Quarter: 2012Q4

REPORT INFORMATION
  Report Type: 
  Country: FR (occurrence: FR)
  Receive Date: 20121009
  Receipt Date: 20121026
  Transmission Date: 20130627
  Serious: Yes (Death, Hospitalization, Other)
  Sender: FDA-Public Use
  Company Number: FR-ASTRAZENECA-2012SE76811

PATIENT
  Age: 739 Month
  Sex: Female

DRUGS (1)
  1. CAPRELSA [Suspect]
     Indication: THYROID CANCER
     Route: 048
     Dates: start: 20120201, end: 20120909

REACTIONS (15)
  - Torsade de pointes [Fatal]
  - Cardiac arrest [Fatal]
  - Cardiac failure [Fatal]
  - Electrocardiogram QT prolonged [Fatal]
  - Pancreatic carcinoma [Unknown]
  - Convulsion [Unknown]
  - Anuria [Unknown]
  - Hypokalaemia [Unknown]
  - Pericardial effusion [Unknown]
  - Mydriasis [Unknown]
  - Pulmonary embolism [Unknown]
  - Arrhythmia [Unknown]
  - Diarrhoea [Unknown]
  - Stress cardiomyopathy [Unknown]
  - Memory impairment [Unknown]
